FAERS Safety Report 9088211 (Version 1)
Quarter: 2013Q1

REPORT INFORMATION
  Report Type: Report from Study
  Country: US (occurrence: US)
  Receive Date: 20130201
  Receipt Date: 20130201
  Transmission Date: 20140127
  Serious: No
  Sender: FDA-Public Use
  Company Number: US-ABBOTT-12P-163-1021427-00

PATIENT
  Age: 38 Year
  Sex: Female

DRUGS (12)
  1. HUMIRA [Suspect]
     Indication: RHEUMATOID ARTHRITIS
     Dates: start: 20120913
  2. ASPIRIN [Concomitant]
     Indication: THROMBOSIS PROPHYLAXIS
  3. ASPIRIN [Concomitant]
     Indication: ATRIAL SEPTAL DEFECT
  4. ICAR-C PLUS [Concomitant]
     Indication: ANAEMIA
  5. NEXIUM [Concomitant]
     Indication: GASTRIC DISORDER
  6. SINGULAIR [Concomitant]
     Indication: ASTHMA
  7. SIMVASTATIN [Concomitant]
     Indication: BLOOD CHOLESTEROL
  8. FOLIC ACID [Concomitant]
     Indication: MOUTH ULCERATION
  9. VITAMIN D [Concomitant]
     Indication: PRODUCT USED FOR UNKNOWN INDICATION
  10. TRILEPTAL [Concomitant]
     Indication: CONVULSION
  11. METHOTREXATE [Concomitant]
     Indication: RHEUMATOID ARTHRITIS
  12. METHOTREXATE [Concomitant]
     Indication: PUSTULAR PSORIASIS
     Dates: start: 20121119

REACTIONS (1)
  - Injection site pain [Recovered/Resolved]
